FAERS Safety Report 24883494 (Version 3)
Quarter: 2025Q1

REPORT INFORMATION
  Report Type: Report from Study
  Country: KR (occurrence: KR)
  Receive Date: 20250124
  Receipt Date: 20250217
  Transmission Date: 20250408
  Serious: Yes (Death)
  Sender: KARYOPHARM THERAPEUTICS
  Company Number: KR-ANTENGENE-20250102975

PATIENT
  Age: 69 Year
  Sex: Female
  Weight: 56.6 kg

DRUGS (13)
  1. SELINEXOR [Suspect]
     Active Substance: SELINEXOR
     Indication: Plasma cell myeloma
     Dosage: 100 MG, WEEKLY
     Route: 048
     Dates: start: 20240701, end: 20240722
  2. SELINEXOR [Suspect]
     Active Substance: SELINEXOR
     Dosage: 60 MG, WEEKLY
     Route: 048
     Dates: start: 20240729, end: 20240729
  3. LASIX [Concomitant]
     Active Substance: FUROSEMIDE
     Indication: Renal amyloidosis
     Dosage: UNK UNK, QD
     Route: 048
     Dates: start: 20240701
  4. ALDACTONE [Concomitant]
     Active Substance: SPIRONOLACTONE
     Indication: Primary amyloidosis
     Dosage: 12.5 MG, QD
     Route: 048
     Dates: start: 20240701
  5. ATORVASTATIN CALCIUM\EZETIMIBE [Concomitant]
     Active Substance: ATORVASTATIN CALCIUM\EZETIMIBE
     Indication: Primary amyloidosis
     Dosage: UNK, QD
     Route: 048
     Dates: start: 20240701
  6. MIDRON [Concomitant]
     Dosage: UNK, BID
     Route: 048
     Dates: start: 20240701
  7. DEXAMETHASONE [Concomitant]
     Active Substance: DEXAMETHASONE
     Indication: Plasma cell myeloma
     Dosage: 20 MG, QD
     Route: 048
     Dates: start: 20240701
  8. SULFAMETHOXAZOLE\TRIMETHOPRIM [Concomitant]
     Active Substance: SULFAMETHOXAZOLE\TRIMETHOPRIM
     Indication: Prophylaxis
     Dosage: UNK, QD
     Route: 048
     Dates: start: 20240701
  9. ALMAGEL-F [Concomitant]
     Indication: Prophylaxis
     Dosage: UNK, TID
     Route: 048
     Dates: start: 20240701
  10. ONSERAN [Concomitant]
     Indication: Prophylaxis
     Dosage: 8 MG, QD
     Route: 048
     Dates: start: 20240701
  11. MACPERAN [METOCLOPRAMIDE] [Concomitant]
     Indication: Prophylaxis
     Dosage: UNK UNK, TID
     Route: 048
     Dates: start: 20240701
  12. ZOYLEX [ACICLOVIR] [Concomitant]
     Indication: Prophylaxis
     Dosage: 400 MG, QD
     Route: 048
     Dates: start: 20240701
  13. ZYPREXA [Concomitant]
     Active Substance: OLANZAPINE
     Indication: Prophylaxis
     Dosage: 2.5 MG, BID
     Route: 048
     Dates: start: 20240701

REACTIONS (5)
  - Death [Fatal]
  - Nausea [Not Recovered/Not Resolved]
  - Vomiting [Recovered/Resolved]
  - Fatigue [Not Recovered/Not Resolved]
  - Thrombocytopenia [Not Recovered/Not Resolved]

NARRATIVE: CASE EVENT DATE: 20240718
